FAERS Safety Report 6349582-3 (Version None)
Quarter: 2009Q3

REPORT INFORMATION
  Report Type: 
  Country: None (occurrence: None)
  Receive Date: 20090911
  Receipt Date: 20090831
  Transmission Date: 20100115
  Serious: Yes (Other)
  Sender: FDA-Public Use
  Company Number: BR-PFIZER INC-2009193118

PATIENT
  Age: 64 Year

DRUGS (9)
  1. NEURONTIN [Suspect]
     Indication: NEURALGIA
     Dosage: 600 MG, 1X/DAY
     Route: 048
     Dates: start: 20090315, end: 20090301
  2. NEURONTIN [Suspect]
     Dosage: 600 MG, 2X/DAY
     Route: 048
     Dates: start: 20090301
  3. LYRICA [Suspect]
     Dosage: 75 MG, 1X/DAY
     Route: 048
     Dates: start: 20090830, end: 20090901
  4. DORFLEX [Suspect]
     Indication: PAIN
  5. PANTOPRAZOLE [Concomitant]
     Dosage: 80 MG, UNK
  6. OMEPRAZOL [Concomitant]
     Dosage: UNK
  7. TAMSULOSIN [Concomitant]
     Dosage: UNK
  8. FRONTAL [Concomitant]
     Indication: SLEEP DISORDER
     Dosage: UNK
  9. OMNIC [Concomitant]
     Dosage: UNK

REACTIONS (11)
  - BLOOD PRESSURE INCREASED [None]
  - DIZZINESS [None]
  - FATIGUE [None]
  - HERNIA [None]
  - INSOMNIA [None]
  - LISTLESS [None]
  - PAIN [None]
  - SOMNOLENCE [None]
  - SPEECH DISORDER [None]
  - TOOTHACHE [None]
  - WEIGHT INCREASED [None]
